FAERS Safety Report 7645492-X (Version None)
Quarter: 2011Q3

REPORT INFORMATION
  Report Type: 
  Country: None (occurrence: None)
  Receive Date: 20110729
  Receipt Date: 20110720
  Transmission Date: 20111222
  Serious: Yes (Hospitalization)
  Sender: FDA-Public Use
  Company Number: AU-ASTRAZENECA-2011SE43799

PATIENT
  Age: 35 Year
  Sex: Female

DRUGS (6)
  1. LITHIUM CARBONATE [Suspect]
     Route: 048
  2. SEROQUEL XR [Suspect]
     Route: 048
  3. SEROQUEL XR [Suspect]
     Route: 048
  4. ENDEP [Concomitant]
     Route: 048
  5. TRIMETHOPRIM [Concomitant]
     Indication: URINARY TRACT INFECTION
  6. ALPRIM [Suspect]
     Route: 048
     Dates: start: 20110126, end: 20110130

REACTIONS (5)
  - ATAXIA [None]
  - FALL [None]
  - TREMOR [None]
  - CONDITION AGGRAVATED [None]
  - URINARY TRACT INFECTION [None]
